FAERS Safety Report 14423500 (Version 1)
Quarter: 2018Q1

REPORT INFORMATION
  Report Type: Spontaneous
  Country: US (occurrence: US)
  Receive Date: 20180122
  Receipt Date: 20180122
  Transmission Date: 20180509
  Serious: Yes (Disabling, Other)
  Sender: FDA-Public Use
  Company Number: None

PATIENT
  Age: 49 Year
  Sex: Female
  Weight: 65.77 kg

DRUGS (3)
  1. MULTIVITAMIN [Concomitant]
     Active Substance: VITAMINS
  2. MESALAMINE DELAYED-RELEASE TABLETS 1.2G [Suspect]
     Active Substance: MESALAMINE
     Indication: COLITIS ULCERATIVE
     Route: 048
     Dates: start: 20171101, end: 20171201
  3. GABAPENTIN. [Concomitant]
     Active Substance: GABAPENTIN

REACTIONS (7)
  - Abdominal pain [None]
  - Pain [None]
  - Abdominal distension [None]
  - Product substitution issue [None]
  - Colitis ulcerative [None]
  - Condition aggravated [None]
  - Haemorrhage [None]

NARRATIVE: CASE EVENT DATE: 20171101
